FAERS Safety Report 6372455-7 (Version None)
Quarter: 2009Q3

REPORT INFORMATION
  Report Type: 
  Country: None (occurrence: None)
  Receive Date: 20090924
  Receipt Date: 20080806
  Transmission Date: 20100115
  Serious: No
  Sender: FDA-Public Use
  Company Number: US-ASTRAZENECA-2008UW15597

PATIENT
  Age: 37 Year
  Sex: Female
  Weight: 154.2 kg

DRUGS (6)
  1. SEROQUEL [Suspect]
     Indication: SLEEP DISORDER
     Dosage: 100 MG
     Route: 048
     Dates: start: 20070101
  2. SEROQUEL [Suspect]
     Indication: ANXIETY
     Dosage: 100 MG
     Route: 048
     Dates: start: 20070101
  3. SEROQUEL [Suspect]
     Indication: DEPRESSION
     Dosage: 100 MG
     Route: 048
     Dates: start: 20070101
  4. LISINOPRIL [Concomitant]
  5. CITALOPRAM [Concomitant]
  6. ANTIBIOTICS [Concomitant]

REACTIONS (5)
  - BEDRIDDEN [None]
  - ILL-DEFINED DISORDER [None]
  - SOMNOLENCE [None]
  - STUPOR [None]
  - WEIGHT INCREASED [None]
